FAERS Safety Report 9895873 (Version 2)
Quarter: 2014Q1

REPORT INFORMATION
  Report Type: Spontaneous
  Country: US (occurrence: US)
  Receive Date: 20140213
  Receipt Date: 20140213
  Transmission Date: 20141002
  Serious: No
  Sender: FDA-Public Use
  Company Number: US-BRISTOL-MYERS SQUIBB COMPANY-17297250

PATIENT
  Age: 69 Year
  Sex: Female

DRUGS (1)
  1. ABATACEPT SUBQ INJECTION 125MG/ML [Suspect]

REACTIONS (4)
  - Eye infection [Unknown]
  - Dizziness [Unknown]
  - Tinnitus [Unknown]
  - Macule [Unknown]
